FAERS Safety Report 6939583-6 (Version None)
Quarter: 2010Q3

REPORT INFORMATION
  Report Type: 
  Country: None (occurrence: None)
  Receive Date: 20100820
  Receipt Date: 20100804
  Transmission Date: 20110219
  Serious: Yes (Congenital Anomaly)
  Sender: FDA-Public Use
  Company Number: 1000015712

PATIENT

DRUGS (4)
  1. CITALOPRAM HYDROBROMIDE [Suspect]
     Dosage: 20MG (20MG, 1 IN 1D), TRANSPLACENTAL
     Route: 064
  2. BETAMETHASONE VALERATE [Suspect]
     Dosage: 100ML (100ML, 1 IN 1 D), TRANSPLACENTAL
     Route: 064
  3. DIAZEPAM [Suspect]
     Dosage: 5MG (5MG, 1 IN 1D), TRANSPLACENTAL
     Route: 064
  4. TRAZODONE HCL [Suspect]
     Dosage: 100MG (100 MG, 1 IN 1D) TRANSPLACENTAL
     Route: 063

REACTIONS (2)
  - CLEFT PALATE [None]
  - MATERNAL DRUGS AFFECTING FOETUS [None]
